FAERS Safety Report 5977847-3 (Version None)
Quarter: 2008Q4

REPORT INFORMATION
  Report Type: 
  Country: None (occurrence: None)
  Receive Date: 20081203
  Receipt Date: 20081126
  Transmission Date: 20090506
  Serious: Yes (Hospitalization)
  Sender: FDA-Public Use
  Company Number: CH-ROCHE-589598

PATIENT
  Sex: Female
  Weight: 75 kg

DRUGS (5)
  1. XELODA [Suspect]
     Route: 048
     Dates: start: 20080601
  2. AVASTIN [Suspect]
     Route: 042
     Dates: start: 20080627, end: 20080801
  3. AVASTIN [Suspect]
     Route: 042
     Dates: end: 20081001
  4. PLAVIX [Concomitant]
  5. SINTROM [Concomitant]

REACTIONS (2)
  - COLITIS [None]
  - EMPHYSEMATOUS CYSTITIS [None]
